FAERS Safety Report 24437403 (Version 1)
Quarter: 2024Q4

REPORT INFORMATION
  Report Type: Spontaneous
  Country: US (occurrence: None)
  Receive Date: 20241011
  Receipt Date: 20241011
  Transmission Date: 20250115
  Serious: Yes (Hospitalization)
  Sender: Public
  Company Number: None

PATIENT
  Age: 73 Year
  Sex: Male

DRUGS (1)
  1. SULFAMETHIZOLE\TRIMETHOPRIM [Suspect]
     Active Substance: SULFAMETHIZOLE\TRIMETHOPRIM
     Indication: Allergy test
     Dosage: OTHER FREQUENCY : ONCE;?
     Route: 048
     Dates: start: 20240408, end: 20240408

REACTIONS (6)
  - Dermatitis [None]
  - Rash [None]
  - Ecchymosis [None]
  - Erythema [None]
  - Dermatitis bullous [None]
  - Pruritus [None]

NARRATIVE: CASE EVENT DATE: 20240409
